FAERS Safety Report 9432671 (Version 14)
Quarter: 2022Q4

REPORT INFORMATION
  Report Type: Spontaneous
  Country: US (occurrence: US)
  Receive Date: 20130731
  Receipt Date: 20221024
  Transmission Date: 20230112
  Serious: Yes (Other)
  Sender: FDA-Public Use
  Company Number: US-PFIZER INC-2013219837

PATIENT
  Age: 61 Year
  Sex: Female
  Weight: 51.3 kg

DRUGS (14)
  1. PREMARIN [Suspect]
     Active Substance: ESTROGENS, CONJUGATED
     Indication: Hormone replacement therapy
     Dosage: 0.625 MG DAILY
     Route: 048
     Dates: end: 201903
  2. PREMARIN [Suspect]
     Active Substance: ESTROGENS, CONJUGATED
     Indication: Hot flush
     Dosage: 0.625 MG, 1X/DAY
     Route: 048
     Dates: start: 1982
  3. PREMARIN [Suspect]
     Active Substance: ESTROGENS, CONJUGATED
     Indication: Mood swings
     Dosage: 0.5 MG
     Route: 048
  4. PREMARIN [Suspect]
     Active Substance: ESTROGENS, CONJUGATED
     Indication: Crying
     Dosage: 0.45 MG, DAILY
  5. PREMARIN [Suspect]
     Active Substance: ESTROGENS, CONJUGATED
     Indication: Cardiac disorder
  6. PREMARIN [Suspect]
     Active Substance: ESTROGENS, CONJUGATED
     Indication: Bone disorder
  7. PREMARIN [Suspect]
     Active Substance: ESTROGENS, CONJUGATED
  8. ESTRADIOL [Suspect]
     Active Substance: ESTRADIOL
     Indication: Hot flush
     Dosage: 0.5 MG, DAILY
     Route: 048
     Dates: start: 20190305
  9. ESTRADIOL [Suspect]
     Active Substance: ESTRADIOL
     Indication: Mood swings
  10. ESTRADIOL [Suspect]
     Active Substance: ESTRADIOL
     Indication: Crying
  11. ESTRADIOL [Suspect]
     Active Substance: ESTRADIOL
     Indication: Cardiac disorder
  12. ESTRADIOL [Suspect]
     Active Substance: ESTRADIOL
     Indication: Bone disorder
  13. SYNTHROID [Concomitant]
     Active Substance: LEVOTHYROXINE SODIUM
     Indication: Thyroid disorder
     Dosage: UNK, DAILY
     Dates: start: 1989
  14. DOXYCYCLINE [Concomitant]
     Active Substance: DOXYCYCLINE
     Dosage: UNK, AS NEEDED

REACTIONS (9)
  - Neoplasm malignant [Recovered/Resolved]
  - Sleep disorder [Unknown]
  - Feeling abnormal [Unknown]
  - Fatigue [Unknown]
  - Panic attack [Unknown]
  - Post-traumatic stress disorder [Unknown]
  - Drug ineffective [Not Recovered/Not Resolved]
  - Product dispensing error [Unknown]
  - Wrong strength [Unknown]

NARRATIVE: CASE EVENT DATE: 20130601
